FAERS Safety Report 24775161 (Version 1)
Quarter: 2024Q4

REPORT INFORMATION
  Report Type: Spontaneous
  Country: IT (occurrence: IT)
  Receive Date: 20241226
  Receipt Date: 20241226
  Transmission Date: 20250115
  Serious: Yes (Hospitalization)
  Sender: AUROBINDO
  Company Number: IT-MINISAL02-1015525

PATIENT
  Age: 65 Year
  Sex: Female

DRUGS (6)
  1. CEFIXIME [Suspect]
     Active Substance: CEFIXIME
     Indication: Urinary tract infection
     Dosage: UNK
     Route: 065
  2. NITROFURANTOIN [Suspect]
     Active Substance: NITROFURANTOIN
     Indication: Urinary tract infection
     Dosage: UNK
     Route: 065
  3. TIROSINT [Concomitant]
     Active Substance: LEVOTHYROXINE SODIUM
     Indication: Product used for unknown indication
     Dosage: UNK
     Route: 065
  4. LANOXIN [Concomitant]
     Active Substance: DIGOXIN
     Indication: Product used for unknown indication
     Dosage: UNK
     Route: 065
  5. FUROSEMIDE\SPIRONOLACTONE [Concomitant]
     Active Substance: FUROSEMIDE\SPIRONOLACTONE
     Indication: Product used for unknown indication
     Dosage: UNK
     Route: 065
  6. METHYLPREDNISOLONE [Concomitant]
     Active Substance: METHYLPREDNISOLONE
     Indication: Product used for unknown indication
     Dosage: UNK
     Route: 065

REACTIONS (2)
  - Drug hypersensitivity [Recovering/Resolving]
  - Bronchospasm [Recovering/Resolving]

NARRATIVE: CASE EVENT DATE: 20241205
